FAERS Safety Report 18130198 (Version 3)
Quarter: 2020Q3

REPORT INFORMATION
  Report Type: Spontaneous
  Country: US (occurrence: US)
  Receive Date: 20200810
  Receipt Date: 20200824
  Transmission Date: 20201103
  Serious: No
  Sender: FDA-Public Use
  Company Number: US-LEO PHARMA-330884

PATIENT
  Age: 72 Year
  Sex: Female

DRUGS (1)
  1. DAIVONEX [Suspect]
     Active Substance: CALCIPOTRIENE
     Indication: PSORIASIS
     Dosage: USED DAILY FOR 1 WEEK (2 X DAILY)
     Route: 061
     Dates: start: 20200626

REACTIONS (7)
  - Dermatitis [Recovering/Resolving]
  - Product administered at inappropriate site [Unknown]
  - Pain of skin [Recovering/Resolving]
  - Psoriasis [Recovering/Resolving]
  - Skin exfoliation [Recovering/Resolving]
  - Erythema [Recovering/Resolving]
  - Pruritus [Recovering/Resolving]
